FAERS Safety Report 11461338 (Version 1)
Quarter: 2015Q3

REPORT INFORMATION
  Report Type: Spontaneous
  Country: US (occurrence: US)
  Receive Date: 20150831
  Receipt Date: 20150831
  Transmission Date: 20151125
  Serious: Yes (Other)
  Sender: FDA-Public Use
  Company Number: US-ELI_LILLY_AND_COMPANY-US200912003324

PATIENT
  Age: 46 Year
  Sex: Female

DRUGS (4)
  1. METHADONE [Concomitant]
     Active Substance: METHADONE HYDROCHLORIDE
  2. VALTREX [Concomitant]
     Active Substance: VALACYCLOVIR HYDROCHLORIDE
  3. CYMBALTA [Suspect]
     Active Substance: DULOXETINE HYDROCHLORIDE
     Indication: DEPRESSION
     Dosage: UNK, DAILY (1/D)
     Dates: start: 2007, end: 200810
  4. ASPIRIN. [Concomitant]
     Active Substance: ASPIRIN

REACTIONS (16)
  - Influenza like illness [Recovered/Resolved]
  - Nightmare [Recovering/Resolving]
  - Dyspnoea [Recovering/Resolving]
  - Vomiting [Recovered/Resolved]
  - Somnolence [Recovering/Resolving]
  - Migraine [Unknown]
  - Suicidal behaviour [Recovered/Resolved]
  - Sleep disorder [Recovering/Resolving]
  - Drug withdrawal syndrome [Recovered/Resolved]
  - Drug withdrawal headache [Recovered/Resolved]
  - Poor quality sleep [Recovering/Resolving]
  - Nausea [Recovered/Resolved]
  - Vitamin D decreased [Not Recovered/Not Resolved]
  - Cognitive disorder [Unknown]
  - Pyrexia [Recovered/Resolved]
  - Feeling abnormal [Unknown]

NARRATIVE: CASE EVENT DATE: 2007
